FAERS Safety Report 19674476 (Version 1)
Quarter: 2021Q3

REPORT INFORMATION
  Report Type: Spontaneous
  Country: US (occurrence: US)
  Receive Date: 20210809
  Receipt Date: 20210809
  Transmission Date: 20211014
  Serious: Yes (Other)
  Sender: FDA-Public Use
  Company Number: US-ALKEM LABORATORIES LIMITED-US-ALKEM-2020-03673

PATIENT

DRUGS (2)
  1. ITRACONAZOLE. [Suspect]
     Active Substance: ITRACONAZOLE
     Indication: PRODUCT USED FOR UNKNOWN INDICATION
     Dosage: 200 MILLIGRAM, QD, ON DAYS 21?40
     Route: 048
  2. VEMURAFENIB. [Suspect]
     Active Substance: VEMURAFENIB
     Indication: BRAF V600E MUTATION POSITIVE
     Dosage: 960 MILLIGRAM, BID
     Route: 048

REACTIONS (3)
  - Drug interaction [Unknown]
  - Alanine aminotransferase increased [Unknown]
  - Aspartate aminotransferase increased [Unknown]
